FAERS Safety Report 4559804-7 (Version None)
Quarter: 2005Q1

REPORT INFORMATION
  Report Type: 
  Country: None (occurrence: None)
  Receive Date: 20050107
  Receipt Date: 20040630
  Transmission Date: 20050727
  Serious: Yes (Hospitalization)
  Sender: FDA-Public Use
  Company Number: DSA_24644_2004

PATIENT
  Sex: 0

DRUGS (1)
  1. CARDIZEM [Suspect]
     Dates: start: 20040501, end: 20040501

REACTIONS (1)
  - ATRIOVENTRICULAR BLOCK [None]
